FAERS Safety Report 10173955 (Version 3)
Quarter: 2014Q2

REPORT INFORMATION
  Report Type: Spontaneous
  Country: US (occurrence: US)
  Receive Date: 20140515
  Receipt Date: 20140521
  Transmission Date: 20141212
  Serious: Yes (Other)
  Sender: FDA-Public Use
  Company Number: US-BAYER-2014-069999

PATIENT
  Age: 31 Year
  Sex: Female

DRUGS (2)
  1. MIRENA [Suspect]
     Indication: CONTRACEPTION
     Dosage: 20 MCG/24HR, CONT
     Route: 015
     Dates: start: 20140505, end: 20140505
  2. MIRENA [Suspect]
     Indication: MENORRHAGIA

REACTIONS (3)
  - Uterine perforation [Recovered/Resolved]
  - Device difficult to use [Recovered/Resolved]
  - Device difficult to use [Recovered/Resolved]
